FAERS Safety Report 5326259-4 (Version None)
Quarter: 2007Q2

REPORT INFORMATION
  Report Type: 
  Country: None (occurrence: None)
  Receive Date: 20070514
  Receipt Date: 20070514
  Transmission Date: 20071010
  Serious: Yes (Hospitalization)
  Sender: FDA-Public Use
  Company Number: None

PATIENT
  Age: 62 Year
  Sex: Male

DRUGS (1)
  1. SIMVASTATIN [Suspect]
     Indication: SINUSITIS
     Dosage: 80 MG EVERY DAY PO
     Route: 048
     Dates: start: 20070508, end: 20070514

REACTIONS (1)
  - MYALGIA [None]
